FAERS Safety Report 5127509-X (Version None)
Quarter: 2006Q4

REPORT INFORMATION
  Report Type: 
  Country: None (occurrence: None)
  Receive Date: 20061010
  Receipt Date: 20060925
  Transmission Date: 20070319
  Serious: Yes (Other)
  Sender: FDA-Public Use
  Company Number: 2006116631

PATIENT
  Age: 65 Year
  Sex: Male
  Weight: 83.2 kg

DRUGS (5)
  1. SUTENT [Suspect]
     Indication: RENAL CELL CARCINOMA STAGE UNSPECIFIED
     Dosage: 50 MG (50 MG, FREQUENCY: DAILY INTERVAL: CYCLIC), ORAL
     Route: 048
     Dates: start: 20060616
  2. PAMIDRONATE DISODIUM [Concomitant]
  3. WARFARIN SODIUM [Concomitant]
  4. RAMIPRIL [Concomitant]
  5. ACETAMINOPHEN [Concomitant]

REACTIONS (8)
  - ARTERITIS [None]
  - DRUG TOXICITY [None]
  - NEURITIS [None]
  - NEUROPATHY [None]
  - OPTIC NEURITIS [None]
  - PAPILLOEDEMA [None]
  - POLYNEUROPATHY IN MALIGNANT DISEASE [None]
  - VISUAL DISTURBANCE [None]
